FAERS Safety Report 11750141 (Version 2)
Quarter: 2017Q2

REPORT INFORMATION
  Report Type: Spontaneous
  Country: US (occurrence: US)
  Receive Date: 20151118
  Receipt Date: 20170501
  Transmission Date: 20170829
  Serious: No
  Sender: FDA-Public Use
  Company Number: US-PFIZER INC-2015390152

PATIENT
  Age: 51 Year
  Sex: Female
  Weight: 79.38 kg

DRUGS (2)
  1. NEURONTIN [Suspect]
     Active Substance: GABAPENTIN
  2. GABAPENTIN. [Suspect]
     Active Substance: GABAPENTIN
     Dosage: 300 MG, (TAKE ONE CAPSULE TWICE DAILY AND TAKING TWO AT NIGHT)

REACTIONS (1)
  - Drug ineffective [Unknown]
